FAERS Safety Report 5373887-6 (Version None)
Quarter: 2007Q2

REPORT INFORMATION
  Report Type: 
  Country: None (occurrence: None)
  Receive Date: 20070627
  Receipt Date: 20070125
  Transmission Date: 20071010
  Serious: Yes (Other)
  Sender: FDA-Public Use
  Company Number: 479864

PATIENT
  Age: 69 Year
  Sex: Male

DRUGS (2)
  1. XELODA [Suspect]
     Indication: COLORECTAL CANCER
     Dosage: 3 DOSE FORM 2 PER DAY
     Dates: start: 20060526
  2. ERBITUX [Suspect]
     Indication: COLORECTAL CANCER

REACTIONS (5)
  - ARTHRALGIA [None]
  - ARTHRITIS [None]
  - JOINT SWELLING [None]
  - RENAL IMPAIRMENT [None]
  - SWELLING [None]
